FAERS Safety Report 4320332-5 (Version None)
Quarter: 2004Q1

REPORT INFORMATION
  Report Type: 
  Country: None (occurrence: None)
  Receive Date: 20040317
  Receipt Date: 20040308
  Transmission Date: 20041129
  Serious: Yes (Other)
  Sender: FDA-Public Use
  Company Number: 2004203088FR

PATIENT
  Sex: Female

DRUGS (3)
  1. ZYVOX [Suspect]
     Indication: PNEUMONIA STAPHYLOCOCCAL
     Dosage: 1 DF, IV
     Route: 042
     Dates: start: 20040301, end: 20040301
  2. CORTICOSTEROIDS [Concomitant]
  3. DIURETICS [Concomitant]

REACTIONS (2)
  - AGITATION [None]
  - SUPRAVENTRICULAR TACHYCARDIA [None]
